FAERS Safety Report 6303705-0 (Version None)
Quarter: 2009Q3

REPORT INFORMATION
  Report Type: 
  Country: None (occurrence: None)
  Receive Date: 20090810
  Receipt Date: 20090804
  Transmission Date: 20100115
  Serious: Yes (Hospitalization, Other)
  Sender: FDA-Public Use
  Company Number: US-AMGEN-QUU351234

PATIENT
  Sex: Female
  Weight: 47 kg

DRUGS (14)
  1. ARANESP [Suspect]
     Indication: RENAL FAILURE CHRONIC
     Route: 058
     Dates: start: 20061001, end: 20090607
  2. ATACAND [Concomitant]
  3. NORVASC [Concomitant]
  4. CLONIDINE [Concomitant]
  5. ATENOLOL [Concomitant]
  6. CARBAMAZEPINE [Concomitant]
  7. ROCALTROL [Concomitant]
  8. LABETALOL HCL [Concomitant]
  9. LAMICTAL [Concomitant]
  10. ZYRTEC [Concomitant]
  11. VITAMIN C AND E [Concomitant]
  12. MIRALAX [Concomitant]
  13. COLACE [Concomitant]
  14. DEPO-PROVERA [Concomitant]
     Dates: start: 20090610

REACTIONS (7)
  - ANAEMIA [None]
  - HOSPITALISATION [None]
  - HYPERTENSION [None]
  - HYPOTENSION [None]
  - IRON DEFICIENCY ANAEMIA [None]
  - OCCULT BLOOD POSITIVE [None]
  - TACHYCARDIA [None]
